FAERS Safety Report 4388919-1 (Version None)
Quarter: 2004Q2

REPORT INFORMATION
  Report Type: 
  Country: None (occurrence: None)
  Receive Date: 20040628
  Receipt Date: 20040611
  Transmission Date: 20050107
  Serious: Yes (Other)
  Sender: FDA-Public Use
  Company Number: 2004-06-1041

PATIENT
  Sex: Female

DRUGS (1)
  1. ALBUTEROL (WARRICK) ORAL SOLUTION ^LIKE PROVENTIL^ [Suspect]
     Dosage: PRN ORAL AER INH

REACTIONS (3)
  - PHARMACEUTICAL PRODUCT COMPLAINT [None]
  - RIB FRACTURE [None]
  - ROAD TRAFFIC ACCIDENT [None]
